FAERS Safety Report 9185926 (Version 1)
Quarter: 2013Q1

REPORT INFORMATION
  Report Type: Spontaneous
  Country: US (occurrence: None)
  Receive Date: 20130321
  Receipt Date: 20130321
  Transmission Date: 20140127
  Serious: Yes (Hospitalization)
  Sender: FDA-Public Use
  Company Number: 1636399

PATIENT
  Age: 11 Month
  Sex: Male
  Weight: 10.4 kg

DRUGS (5)
  1. FENTANYL CITRATE [Suspect]
  2. LORAZEPAM [Suspect]
     Route: 042
  3. MORPHINE SULPHATE [Suspect]
     Route: 041
  4. MIDAZOLAM [Suspect]
  5. SILDENAFIL [Concomitant]

REACTIONS (1)
  - Drug withdrawal syndrome [None]
